FAERS Safety Report 7441629-6 (Version None)
Quarter: 2011Q2

REPORT INFORMATION
  Report Type: 
  Country: None (occurrence: None)
  Receive Date: 20110425
  Receipt Date: 20110425
  Transmission Date: 20111010
  Serious: Yes (Life-Threatening, Hospitalization)
  Sender: FDA-Public Use
  Company Number: None

PATIENT
  Age: 69 Year
  Sex: Female
  Weight: 88.2 kg

DRUGS (17)
  1. ATIVAN [Concomitant]
  2. DUONEB [Concomitant]
  3. IMODIUM [Concomitant]
  4. PROMETHAZINE [Concomitant]
  5. CALCITONIN NASAL SPRAY [Concomitant]
  6. SENOKOT [Concomitant]
  7. NORCO [Concomitant]
  8. MUCINEX [Concomitant]
  9. LEVOFLOXACIN [Suspect]
     Indication: PNEUMONIA
     Dosage: 750 MG BID PO
     Route: 048
     Dates: start: 20110420, end: 20110422
  10. MS CONTIN [Concomitant]
  11. POTASSIUM CHLORIDE [Concomitant]
  12. IRON POLYSACCHARIDE [Concomitant]
  13. OMEPRAZOLE [Concomitant]
  14. ACETAMINOPHEN [Concomitant]
  15. GLIPIZIDE [Concomitant]
  16. HYDROCORTISONE CREAM [Concomitant]
  17. WARFARIN [Concomitant]

REACTIONS (2)
  - RHABDOMYOLYSIS [None]
  - HYPOTENSION [None]
